FAERS Safety Report 8287227-6 (Version None)
Quarter: 2012Q2

REPORT INFORMATION
  Report Type: 
  Country: None (occurrence: None)
  Receive Date: 20120416
  Receipt Date: 20120402
  Transmission Date: 20120825
  Serious: Yes (Hospitalization)
  Sender: FDA-Public Use
  Company Number: US-RANBAXY-2012US-55389

PATIENT
  Age: 69 Year
  Sex: Male

DRUGS (4)
  1. RISPERIDONE [Suspect]
     Indication: MAJOR DEPRESSION
     Dosage: 3 MG/DAY
     Route: 065
  2. SERTRALINE HYDROCHLORIDE [Interacting]
     Indication: MAJOR DEPRESSION
     Dosage: 150 MG/DAY
     Route: 065
  3. TRAZODONE HCL [Concomitant]
     Indication: INSOMNIA
     Dosage: 50MG AT BED TIME
     Route: 065
  4. METOPROLOL [Concomitant]
     Indication: PRODUCT USED FOR UNKNOWN INDICATION
     Dosage: 200MG/DAY
     Route: 065

REACTIONS (2)
  - DRUG INTERACTION [None]
  - SEROTONIN SYNDROME [None]
